FAERS Safety Report 17880707 (Version 1)
Quarter: 2020Q2

REPORT INFORMATION
  Report Type: Spontaneous
  Country: US (occurrence: US)
  Receive Date: 20200610
  Receipt Date: 20200610
  Transmission Date: 20200714
  Serious: No
  Sender: FDA-Public Use
  Company Number: None

PATIENT
  Age: 63 Year
  Sex: Male

DRUGS (1)
  1. PIPERACILLIN/TAZOBACTAM (PIPERACILLIN NA 3GM/TAZOBACTAM NA 0.37GM/50ML [Suspect]
     Active Substance: PIPERACILLIN SODIUM\TAZOBACTAM SODIUM
     Indication: LOCALISED INFECTION
     Dosage: ?          OTHER STRENGTH:0.37GM/50ML;?
     Route: 042
     Dates: start: 20180322, end: 20180324

REACTIONS (2)
  - Blood creatinine increased [None]
  - Tubulointerstitial nephritis [None]

NARRATIVE: CASE EVENT DATE: 20180324
